FAERS Safety Report 25467027 (Version 1)
Quarter: 2025Q2

REPORT INFORMATION
  Report Type: Spontaneous
  Country: US (occurrence: US)
  Receive Date: 20250623
  Receipt Date: 20250623
  Transmission Date: 20250716
  Serious: No
  Sender: JOHNSON AND JOHNSON
  Company Number: US-JNJFOC-20250619802

PATIENT
  Age: 63 Year
  Sex: Female

DRUGS (1)
  1. XARELTO [Suspect]
     Active Substance: RIVAROXABAN
     Indication: Product used for unknown indication
     Route: 048
     Dates: start: 202501

REACTIONS (11)
  - Sinusitis [Unknown]
  - Animal bite [Unknown]
  - Peripheral swelling [Recovered/Resolved]
  - Oral discomfort [Unknown]
  - Glossodynia [Unknown]
  - Incoherent [Unknown]
  - Feeding disorder [Unknown]
  - Dry mouth [Unknown]
  - Dry eye [Unknown]
  - Throat tightness [Unknown]
  - Lip dry [Unknown]

NARRATIVE: CASE EVENT DATE: 20250301
